FAERS Safety Report 5081523-1 (Version None)
Quarter: 2006Q3

REPORT INFORMATION
  Report Type: 
  Country: None (occurrence: None)
  Receive Date: 20060815
  Receipt Date: 20060815
  Transmission Date: 20061208
  Serious: Yes (Life-Threatening, Hospitalization, Other)
  Sender: FDA-Public Use
  Company Number: None

PATIENT
  Age: 43 Year
  Sex: Male
  Weight: 65.7716 kg

DRUGS (1)
  1. CELEBREX [Suspect]
     Indication: OSTEOPOROSIS
     Dosage: 200 MG DAILY PO
     Route: 048
     Dates: start: 20020622, end: 20030717

REACTIONS (6)
  - ANXIETY [None]
  - DISCOMFORT [None]
  - HEADACHE [None]
  - MYOCARDIAL INFARCTION [None]
  - PAIN [None]
  - PANIC REACTION [None]
